FAERS Safety Report 4731823-7 (Version None)
Quarter: 2005Q3

REPORT INFORMATION
  Report Type: 
  Country: None (occurrence: None)
  Receive Date: 20050725
  Receipt Date: 20050401
  Transmission Date: 20060218
  Serious: Yes (Disabling)
  Sender: FDA-Public Use
  Company Number: WAES 0504USA00826

PATIENT
  Sex: Male

DRUGS (2)
  1. VIOXX [Suspect]
     Indication: ARTHRITIS
     Dosage: PO
     Route: 048
  2. VIOXX [Suspect]
     Indication: NEURALGIA
     Dosage: PO
     Route: 048

REACTIONS (1)
  - INJURY [None]
